FAERS Safety Report 24307060 (Version 1)
Quarter: 2024Q3

REPORT INFORMATION
  Report Type: Spontaneous
  Country: GB (occurrence: GB)
  Receive Date: 20240911
  Receipt Date: 20240911
  Transmission Date: 20241017
  Serious: Yes (Other)
  Sender: ELI LILLY AND CO
  Company Number: GB-MHRA-TPP20327476C7122428YC1724925741781

PATIENT
  Age: 79 Year
  Sex: Male
  Weight: 120 kg

DRUGS (22)
  1. MOUNJARO [Suspect]
     Active Substance: TIRZEPATIDE
     Indication: Ill-defined disorder
     Dosage: 2.5 MG, UNKNOWN
     Route: 065
  2. MOUNJARO [Suspect]
     Active Substance: TIRZEPATIDE
     Indication: Ill-defined disorder
     Dosage: 2.5 MG, UNKNOWN
     Route: 065
  3. MOUNJARO [Suspect]
     Active Substance: TIRZEPATIDE
     Indication: Ill-defined disorder
     Dosage: 2.5 MG, UNKNOWN
     Route: 065
  4. MOUNJARO [Suspect]
     Active Substance: TIRZEPATIDE
     Indication: Ill-defined disorder
     Dosage: 2.5 MG, UNKNOWN
     Route: 065
  5. ADIZEM [Concomitant]
     Active Substance: DILTIAZEM HYDROCHLORIDE
     Indication: Ill-defined disorder
     Dosage: UNK, DAILY
     Dates: start: 20230822
  6. ATORVASTATIN [Concomitant]
     Active Substance: ATORVASTATIN
     Indication: Ill-defined disorder
     Dosage: UNK UNK, DAILY
     Dates: start: 20230822
  7. DORZOLAMIDE [Concomitant]
     Active Substance: DORZOLAMIDE
     Indication: Ill-defined disorder
     Dosage: 1 DOSAGE FORM, BID
     Dates: start: 20230822
  8. EASYHALER [Concomitant]
     Indication: Ill-defined disorder
     Dosage: INHALE ONE OR TWO PUFFS AS NEEDED FOR ASTHMA SY...
     Dates: start: 20230822
  9. EDOXABAN [Concomitant]
     Active Substance: EDOXABAN
     Indication: Product used for unknown indication
     Dosage: TAKE ONE TABLET ONCE A DAY TO THIN THE BLOOD TO...
     Dates: start: 20230822
  10. FERROUS FUMARATE [Concomitant]
     Active Substance: FERROUS FUMARATE
     Indication: Ill-defined disorder
     Dosage: 1 DOSAGE FORM, TID
     Dates: start: 20230822
  11. BECLOMETHASONE\FORMOTEROL [Concomitant]
     Active Substance: BECLOMETHASONE\FORMOTEROL
     Indication: Ill-defined disorder
     Dosage: 2 DOSAGE FORM, DAILY
     Dates: start: 20230822
  12. GLICLAZIDE [Concomitant]
     Active Substance: GLICLAZIDE
     Indication: Ill-defined disorder
     Dosage: TAKE ONE WITH EVENING MEAL
     Dates: start: 20230822
  13. LOSARTAN [Concomitant]
     Active Substance: LOSARTAN\LOSARTAN POTASSIUM
     Indication: Ill-defined disorder
     Dosage: UNK UNK, DAILY
     Dates: start: 20230822
  14. METFORMIN [Concomitant]
     Active Substance: METFORMIN HYDROCHLORIDE
     Indication: Ill-defined disorder
     Dosage: 2 DOSAGE FORM, BID (WITH FOOD)
     Route: 065
     Dates: start: 20230822
  15. OMEPRAZOLE [Concomitant]
     Active Substance: OMEPRAZOLE
     Indication: Ill-defined disorder
     Dosage: TAKE ONE DAILY TO REDUCE STOMACH ACID
     Dates: start: 20230822
  16. ACETAMINOPHEN [Concomitant]
     Active Substance: ACETAMINOPHEN
     Indication: Ill-defined disorder
     Dosage: TAKE 1-2 UP TO 4 TIMES A DAY
     Dates: start: 20230822
  17. PEPTAC [PANTOPRAZOLE] [Concomitant]
     Indication: Ill-defined disorder
     Dosage: 20ML TO BE TAKEN FOUR TIMES A DAY AS REQUIRED
     Dates: start: 20230822
  18. PERFORMA [PIRFENIDONE] [Concomitant]
     Indication: Ill-defined disorder
     Dosage: TO BE USED AS DIRECTED
     Dates: start: 20230822
  19. SERTRALINE [Concomitant]
     Active Substance: SERTRALINE HYDROCHLORIDE
     Indication: Ill-defined disorder
     Dosage: TAKE ONE TABLET DAILY FOR ANXIETY/DEPRESSION
     Dates: start: 20230822
  20. TRAVOPROST [Concomitant]
     Active Substance: TRAVOPROST
     Indication: Ill-defined disorder
     Dosage: ONE DROP ONCE AT NIGHT TO BOTH EYES
     Dates: start: 20230822
  21. OZEMPIC [Concomitant]
     Active Substance: SEMAGLUTIDE
     Indication: Ill-defined disorder
     Dosage: TO BE ADMINISTERED ONCE A WEEK BY  SUBCUTANEOUS...
     Dates: start: 20240207, end: 20240726
  22. TIRZEPATIDE [Concomitant]
     Active Substance: TIRZEPATIDE
     Indication: Ill-defined disorder
     Dosage: USE AS DIRECTED
     Dates: start: 20240726

REACTIONS (5)
  - Illness [Recovered/Resolved]
  - Nausea [Recovered/Resolved]
  - Diarrhoea [Recovered/Resolved]
  - Vomiting [Recovered/Resolved]
  - Off label use [Unknown]
